FAERS Safety Report 8433507-0 (Version None)
Quarter: 2012Q2

REPORT INFORMATION
  Report Type: 
  Country: None (occurrence: None)
  Receive Date: 20120613
  Receipt Date: 20120611
  Transmission Date: 20120825
  Serious: Yes (Hospitalization)
  Sender: FDA-Public Use
  Company Number: FR-BAYER-2012-058223

PATIENT
  Age: 50 Year
  Sex: Male

DRUGS (8)
  1. CEFTAZIDIME SODIUM [Suspect]
     Indication: ENTEROBACTER INFECTION
     Dosage: 8 G, QD
     Route: 042
     Dates: start: 20120327, end: 20120401
  2. LEVOFLOXACIN [Concomitant]
     Dosage: UNK
     Dates: start: 20120301, end: 20120301
  3. CEFTAZIDIME SODIUM [Suspect]
     Indication: ACINETOBACTER INFECTION
  4. CIPROFLOXACIN HYDROCHLORIDE [Suspect]
     Indication: ACINETOBACTER INFECTION
  5. ORBENIN CAP [Concomitant]
     Dosage: UNK
     Dates: start: 20120319, end: 20120301
  6. GENTAMICIN [Concomitant]
     Dosage: UNK
     Dates: start: 20120319, end: 20120301
  7. CIPROFLOXACIN HYDROCHLORIDE [Suspect]
     Indication: ENTEROBACTER INFECTION
     Dosage: 750 MG, BID
     Route: 048
     Dates: start: 20120327, end: 20120401
  8. CEFEPIME HYDROCHLORIDE [Concomitant]
     Dosage: UNK
     Dates: start: 20120301, end: 20120301

REACTIONS (1)
  - NEUTROPENIA [None]
